FAERS Safety Report 7955355-8 (Version None)
Quarter: 2011Q4

REPORT INFORMATION
  Report Type: 
  Country: None (occurrence: None)
  Receive Date: 20111202
  Receipt Date: 20111121
  Transmission Date: 20120403
  Serious: Yes (Other)
  Sender: FDA-Public Use
  Company Number: KR-MYLANLABS-2011S1024304

PATIENT
  Age: 45 Year
  Sex: Female

DRUGS (3)
  1. FLUOXETINE [Concomitant]
     Route: 065
  2. HYDROCHLOROTHIAZIDE [Suspect]
     Indication: WEIGHT DECREASED
     Route: 065
  3. MAGNESIUM HYDROXIDE [Concomitant]
     Route: 065

REACTIONS (2)
  - MYOPIA [None]
  - CHOROIDAL EFFUSION [None]
